FAERS Safety Report 5894908-8 (Version None)
Quarter: 2008Q3

REPORT INFORMATION
  Report Type: 
  Country: None (occurrence: None)
  Receive Date: 20080924
  Receipt Date: 20080916
  Transmission Date: 20090109
  Serious: Yes (Other)
  Sender: FDA-Public Use
  Company Number: PHHY2008NL21653

PATIENT
  Sex: Female

DRUGS (2)
  1. EXELON [Suspect]
     Route: 062
  2. EXELON [Suspect]
     Dosage: 9.5 MG
     Route: 062

REACTIONS (1)
  - TRIGEMINAL NEURALGIA [None]
